FAERS Safety Report 5018709-8 (Version None)
Quarter: 2006Q2

REPORT INFORMATION
  Report Type: 
  Country: None (occurrence: None)
  Receive Date: 20060606
  Receipt Date: 20060113
  Transmission Date: 20061013
  Serious: Yes (Hospitalization)
  Sender: FDA-Public Use
  Company Number: US-ROCHE-432380

PATIENT
  Age: 27 Year
  Weight: 68 kg

DRUGS (2)
  1. ACCUTANE [Suspect]
     Route: 048
     Dates: start: 20000123, end: 20010410
  2. ACCUTANE [Suspect]
     Dosage: 40 MG A.M. AND 20 MG P.M
     Route: 048
     Dates: start: 20000915, end: 20010122

REACTIONS (45)
  - ANGINA PECTORIS [None]
  - ANXIETY [None]
  - ARTHRALGIA [None]
  - BLOOD CHOLESTEROL INCREASED [None]
  - CHEST PAIN [None]
  - CHOLECYSTITIS [None]
  - CHOLECYSTITIS CHRONIC [None]
  - CHOLELITHIASIS [None]
  - COLITIS [None]
  - COLITIS ULCERATIVE [None]
  - CYST [None]
  - CYSTITIS [None]
  - DYSPNOEA [None]
  - ERYTHEMA [None]
  - FIBROUS HISTIOCYTOMA [None]
  - GASTROINTESTINAL DISORDER [None]
  - GASTROOESOPHAGEAL REFLUX DISEASE [None]
  - HAEMANGIOMA OF LIVER [None]
  - HEADACHE [None]
  - HELICOBACTER GASTRITIS [None]
  - HEPATIC CIRRHOSIS [None]
  - HEPATIC ENZYME INCREASED [None]
  - HEPATITIS B [None]
  - HEPATITIS C [None]
  - HYPERCHROMASIA [None]
  - INFLAMMATORY BOWEL DISEASE [None]
  - INJURY [None]
  - IRRITABLE BOWEL SYNDROME [None]
  - LIP DRY [None]
  - LIVER DISORDER [None]
  - MALAISE [None]
  - MELANOCYTIC NAEVUS [None]
  - NAUSEA [None]
  - OEDEMA PERIPHERAL [None]
  - PANCREATITIS [None]
  - POST-TRAUMATIC PAIN [None]
  - PRURITUS [None]
  - SCAR [None]
  - SEBORRHOEIC KERATOSIS [None]
  - SKIN DISCOLOURATION [None]
  - SKIN HYPOPIGMENTATION [None]
  - TELANGIECTASIA [None]
  - VAGINITIS BACTERIAL [None]
  - VISUAL DISTURBANCE [None]
  - VOMITING [None]
